FAERS Safety Report 5028909-9 (Version None)
Quarter: 2006Q2

REPORT INFORMATION
  Report Type: 
  Country: None (occurrence: None)
  Receive Date: 20060619
  Receipt Date: 20060104
  Transmission Date: 20061013
  Serious: Yes (Life-Threatening, Hospitalization, Other)
  Sender: FDA-Public Use
  Company Number: IN-GLAXOSMITHKLINE-B0405850A

PATIENT
  Age: 23 Year
  Sex: Male

DRUGS (1)
  1. CEFTAZIDIME [Suspect]
     Indication: APPENDICITIS
     Route: 042
     Dates: start: 20051211, end: 20051211

REACTIONS (4)
  - CHILLS [None]
  - DYSARTHRIA [None]
  - FACIAL PALSY [None]
  - PHARMACEUTICAL PRODUCT COMPLAINT [None]
